FAERS Safety Report 8504650-2 (Version None)
Quarter: 2012Q3

REPORT INFORMATION
  Report Type: 
  Country: None (occurrence: None)
  Receive Date: 20120711
  Receipt Date: 20120627
  Transmission Date: 20120928
  Serious: Yes (Death, Other)
  Sender: FDA-Public Use
  Company Number: GB-ROCHE-1082569

PATIENT
  Sex: Male

DRUGS (2)
  1. KEPPRA [Concomitant]
  2. CLONAZEPAM [Suspect]
     Indication: PRODUCT USED FOR UNKNOWN INDICATION
     Route: 065

REACTIONS (9)
  - AGITATION [None]
  - HALLUCINATION [None]
  - SLEEP APNOEA SYNDROME [None]
  - HYPOPNOEA [None]
  - CARDIAC ARREST [None]
  - ABNORMAL BEHAVIOUR [None]
  - AGGRESSION [None]
  - DRUG INEFFECTIVE [None]
  - PARANOIA [None]
